FAERS Safety Report 14227563 (Version 4)
Quarter: 2018Q1

REPORT INFORMATION
  Report Type: Spontaneous
  Country: BE (occurrence: BE)
  Receive Date: 20171127
  Receipt Date: 20180123
  Transmission Date: 20180508
  Serious: Yes (Death)
  Sender: FDA-Public Use
  Company Number: BE-BRACCO-2017BE05453

PATIENT
  Age: 68 Year
  Sex: Male

DRUGS (2)
  1. MULTIHANCE [Suspect]
     Active Substance: GADOBENATE DIMEGLUMINE
     Indication: NUCLEAR MAGNETIC RESONANCE IMAGING LIVER
     Dosage: 12 ML, SINGLE (2.0 ML/S)
     Route: 042
     Dates: start: 20171025, end: 20171025
  2. GLUCAGEN [Suspect]
     Active Substance: GLUCAGON HYDROCHLORIDE
     Indication: HYPOGLYCAEMIA
     Dosage: 1 DF, TOTAL
     Route: 042
     Dates: start: 20171025, end: 20171025

REACTIONS (2)
  - Cardiac arrest [Fatal]
  - Anaphylactic shock [Fatal]

NARRATIVE: CASE EVENT DATE: 20171025
